FAERS Safety Report 4310947-2 (Version None)
Quarter: 2004Q1

REPORT INFORMATION
  Report Type: 
  Country: None (occurrence: None)
  Receive Date: 20040302
  Receipt Date: 20040302
  Transmission Date: 20041129
  Serious: No
  Sender: FDA-Public Use
  Company Number: None

PATIENT
  Age: 75 Year
  Sex: Male

DRUGS (2)
  1. RANITIDINE [Suspect]
     Indication: EPILEPSY
     Dosage: 150 MG PO Q12H
     Route: 048
  2. DEPAKOTE [Suspect]
     Dosage: 750MG QAM  100MG NOON + 750MG QPM

REACTIONS (2)
  - DEMENTIA [None]
  - PLATELET COUNT DECREASED [None]
